FAERS Safety Report 12631874 (Version 2)
Quarter: 2016Q3

REPORT INFORMATION
  Report Type: Spontaneous
  Country: US (occurrence: US)
  Receive Date: 20160808
  Receipt Date: 20160808
  Transmission Date: 20161109
  Serious: No
  Sender: FDA-Public Use
  Company Number: US-BEH-2016061295

PATIENT
  Sex: Female
  Weight: 72 kg

DRUGS (22)
  1. VITAMIN B [Concomitant]
     Active Substance: VITAMIN B
  2. LIDOCAINE/PRILOCAINE [Concomitant]
     Active Substance: LIDOCAINE\PRILOCAINE
  3. CYCLOSPRINE [Concomitant]
  4. LISINOPRIL. [Concomitant]
     Active Substance: LISINOPRIL
  5. LUTERA [Concomitant]
     Active Substance: ETHINYL ESTRADIOL\LEVONORGESTREL
  6. FLAXSEED [Concomitant]
     Active Substance: FLAX SEED
  7. MULTIVITAMIN [Concomitant]
     Active Substance: VITAMINS
  8. PREDNSIONE [Concomitant]
  9. SYMBICORT [Concomitant]
     Active Substance: BUDESONIDE\FORMOTEROL FUMARATE DIHYDRATE
  10. DIPHENHYDRAMINE. [Concomitant]
     Active Substance: DIPHENHYDRAMINE
  11. EPIPEN [Concomitant]
     Active Substance: EPINEPHRINE
  12. CALCIUM [Concomitant]
     Active Substance: CALCIUM
  13. HIZENTRA [Suspect]
     Active Substance: HUMAN IMMUNOGLOBULIN G
     Indication: IMMUNODEFICIENCY COMMON VARIABLE
     Route: 058
     Dates: start: 20130311
  14. FISH OIL [Concomitant]
     Active Substance: FISH OIL
  15. CRANBERRY. [Concomitant]
     Active Substance: CRANBERRY
  16. COQ [Concomitant]
  17. ZYRTEC [Concomitant]
     Active Substance: CETIRIZINE HYDROCHLORIDE
  18. PRAVASTATIN. [Concomitant]
     Active Substance: PRAVASTATIN
  19. FLONASE [Concomitant]
     Active Substance: FLUTICASONE PROPIONATE
  20. ACETAMINOPHEN. [Concomitant]
     Active Substance: ACETAMINOPHEN
  21. SINGULAIR [Concomitant]
     Active Substance: MONTELUKAST SODIUM
  22. VITAMIN C [Concomitant]
     Active Substance: ASCORBIC ACID

REACTIONS (3)
  - Skin reaction [Unknown]
  - Pruritus [Unknown]
  - Erythema [Unknown]
